FAERS Safety Report 18173261 (Version 3)
Quarter: 2023Q2

REPORT INFORMATION
  Report Type: Spontaneous
  Country: US (occurrence: US)
  Receive Date: 20200820
  Receipt Date: 20230404
  Transmission Date: 20230722
  Serious: Yes (Other)
  Sender: FDA-Public Use
  Company Number: US-GILEAD-2020-0490499

PATIENT
  Age: 50 Year
  Sex: Male
  Weight: 68.934 kg

DRUGS (47)
  1. TRUVADA [Suspect]
     Active Substance: EMTRICITABINE\TENOFOVIR DISOPROXIL FUMARATE
     Indication: HIV infection
     Dosage: UNK
     Route: 048
     Dates: start: 2006, end: 201710
  2. DESCOVY [Concomitant]
     Active Substance: EMTRICITABINE\TENOFOVIR ALAFENAMIDE FUMARATE
  3. CALCIUM CARBONATE [Concomitant]
     Active Substance: CALCIUM CARBONATE
  4. VITAMIN D2 [Concomitant]
     Active Substance: ERGOCALCIFEROL
  5. NORVIR [Concomitant]
     Active Substance: RITONAVIR
  6. PREZCOBIX [Concomitant]
     Active Substance: COBICISTAT\DARUNAVIR ETHANOLATE
  7. PREZISTA [Concomitant]
     Active Substance: DARUNAVIR ETHANOLATE
  8. TIVICAY [Concomitant]
     Active Substance: DOLUTEGRAVIR SODIUM
  9. ACETAMINOPHEN [Concomitant]
     Active Substance: ACETAMINOPHEN
  10. ALBUTEROL SULFATE [Concomitant]
     Active Substance: ALBUTEROL SULFATE
  11. ALPRAZOLAM [Concomitant]
     Active Substance: ALPRAZOLAM
  12. AMLODIPINE [Concomitant]
     Active Substance: AMLODIPINE BESYLATE
  13. AMOXICILLIN [Concomitant]
     Active Substance: AMOXICILLIN
  14. ASPIRIN [Concomitant]
     Active Substance: ASPIRIN
  15. ATENOLOL [Concomitant]
     Active Substance: ATENOLOL
  16. AZITHROMYCIN [Concomitant]
     Active Substance: AZITHROMYCIN
  17. BUMETANIDE [Concomitant]
     Active Substance: BUMETANIDE
  18. CALCITRIOL [Concomitant]
     Active Substance: CALCITRIOL
  19. CALCIUM ACETATE [Concomitant]
     Active Substance: CALCIUM ACETATE
  20. CARVEDILOL [Concomitant]
     Active Substance: CARVEDILOL
  21. CITALOPRAM [Concomitant]
     Active Substance: CITALOPRAM HYDROBROMIDE
  22. CLONAZEPAM [Concomitant]
     Active Substance: CLONAZEPAM
  23. CREON [Concomitant]
     Active Substance: PANCRELIPASE AMYLASE\PANCRELIPASE LIPASE\PANCRELIPASE PROTEASE
  24. DAPSONE [Concomitant]
     Active Substance: DAPSONE
  25. DOXYCYCLINE HYCLATE [Concomitant]
     Active Substance: DOXYCYCLINE HYCLATE
  26. FUROSEMIDE [Concomitant]
     Active Substance: FUROSEMIDE
  27. GLIPIZIDE [Concomitant]
     Active Substance: GLIPIZIDE
  28. GLUMETZA [Concomitant]
     Active Substance: METFORMIN HYDROCHLORIDE
  29. HYDRALAZINE [Concomitant]
     Active Substance: HYDRALAZINE HYDROCHLORIDE
  30. HYDROCHLOROTHIAZIDE [Concomitant]
     Active Substance: HYDROCHLOROTHIAZIDE
  31. HYDROCODONE [Concomitant]
     Active Substance: HYDROCODONE
  32. HYDROMORPHONE [Concomitant]
     Active Substance: HYDROMORPHONE
  33. HYDROXYZINE [Concomitant]
     Active Substance: HYDROXYZINE HYDROCHLORIDE
  34. LORAZEPAM [Concomitant]
     Active Substance: LORAZEPAM
  35. METFORMIN [Concomitant]
     Active Substance: METFORMIN HYDROCHLORIDE
  36. MINOCYCLINE [Concomitant]
     Active Substance: MINOCYCLINE HYDROCHLORIDE
  37. NOVOLIN 10R [Concomitant]
  38. NOVOLOG [Concomitant]
     Active Substance: INSULIN ASPART
  39. OXYCONTIN [Concomitant]
     Active Substance: OXYCODONE HYDROCHLORIDE
  40. PANTOPRAZOLE SODIUM [Concomitant]
     Active Substance: PANTOPRAZOLE SODIUM
  41. PROAIR HFA [Concomitant]
     Active Substance: ALBUTEROL SULFATE
  42. PROMETHAZINE [Concomitant]
     Active Substance: PROMETHAZINE HYDROCHLORIDE
  43. SEROQUEL [Concomitant]
     Active Substance: QUETIAPINE FUMARATE
  44. FLUCONAZOLE [Concomitant]
     Active Substance: FLUCONAZOLE
  45. JANUVIA [Concomitant]
     Active Substance: SITAGLIPTIN PHOSPHATE
  46. LOSARTAN POTASSIUM [Concomitant]
     Active Substance: LOSARTAN POTASSIUM
  47. LASIX [Concomitant]
     Active Substance: FUROSEMIDE

REACTIONS (15)
  - End stage renal disease [Not Recovered/Not Resolved]
  - Chronic kidney disease [Not Recovered/Not Resolved]
  - Chronic kidney disease [Not Recovered/Not Resolved]
  - Osteoporosis [Not Recovered/Not Resolved]
  - Acute kidney injury [Not Recovered/Not Resolved]
  - Multiple fractures [Not Recovered/Not Resolved]
  - Renal failure [Not Recovered/Not Resolved]
  - Anaemia [Not Recovered/Not Resolved]
  - Pain [Not Recovered/Not Resolved]
  - Emotional distress [Not Recovered/Not Resolved]
  - Anxiety [Not Recovered/Not Resolved]
  - Anhedonia [Unknown]
  - Bone density decreased [Not Recovered/Not Resolved]
  - Depression [Not Recovered/Not Resolved]
  - Hyperkalaemia [Not Recovered/Not Resolved]

NARRATIVE: CASE EVENT DATE: 20080101
